FAERS Safety Report 5945861-X (Version None)
Quarter: 2008Q4

REPORT INFORMATION
  Report Type: 
  Country: None (occurrence: None)
  Receive Date: 20081110
  Receipt Date: 20081031
  Transmission Date: 20090506
  Serious: Yes (Death, Other)
  Sender: FDA-Public Use
  Company Number: US-BAYER-200829753GPV

PATIENT
  Age: 17 Year
  Sex: Male

DRUGS (7)
  1. CAMPATH [Suspect]
     Indication: STEM CELL TRANSPLANT
     Route: 042
  2. FLUDARABINE PHOSPHATE [Suspect]
     Indication: STEM CELL TRANSPLANT
  3. FK 506 [Concomitant]
     Indication: PROPHYLAXIS AGAINST GRAFT VERSUS HOST DISEASE
  4. NEUPOGEN [Concomitant]
     Indication: STEM CELL TRANSPLANT
     Route: 058
  5. ANTIFUNGAL NOS [Concomitant]
     Indication: INFECTION PROPHYLAXIS
     Route: 065
  6. ACYCLOVIR [Concomitant]
     Indication: INFECTION PROPHYLAXIS
     Route: 065
  7. CO-TRIMOXAZOLE [Concomitant]
     Indication: INFECTION PROPHYLAXIS
     Route: 065

REACTIONS (5)
  - LUNG INFILTRATION [None]
  - OBLITERATIVE BRONCHIOLITIS [None]
  - ORGANISING PNEUMONIA [None]
  - PYREXIA [None]
  - RESPIRATORY FAILURE [None]
